FAERS Safety Report 9526019 (Version 1)
Quarter: 2013Q3

REPORT INFORMATION
  Report Type: Spontaneous
  Country: US (occurrence: US)
  Receive Date: 20130916
  Receipt Date: 20130916
  Transmission Date: 20140515
  Serious: Yes (Life-Threatening, Other)
  Sender: FDA-Public Use
  Company Number: US-JNJFOC-20130905045

PATIENT
  Age: 61 Year
  Sex: Female
  Weight: 53.52 kg

DRUGS (11)
  1. BENADRYL [Suspect]
     Route: 048
  2. BENADRYL [Suspect]
     Indication: ARTHROPOD STING
     Dosage: ONE TABLET ONCE.
     Route: 048
  3. KEPPRA [Concomitant]
     Indication: EPILEPSY
     Route: 065
  4. TOPAMAX [Concomitant]
     Indication: MIGRAINE
     Route: 065
  5. TOPAMAX [Concomitant]
     Indication: EPILEPSY
     Route: 065
  6. PLAVIX [Concomitant]
     Indication: ANTICOAGULANT THERAPY
     Route: 065
  7. FOLIC ACID [Concomitant]
     Indication: ANAEMIA
     Route: 065
  8. OXYCODONE [Concomitant]
     Indication: COMPLEX REGIONAL PAIN SYNDROME
     Route: 065
  9. B12 INJECTION [Concomitant]
     Indication: PERNICIOUS ANAEMIA
     Route: 065
  10. VENTOLIN HFA [Concomitant]
     Indication: ASTHMA
     Dosage: AS NEEDED
     Route: 065
  11. INDOMETHACIN [Concomitant]
     Indication: MIGRAINE
     Route: 065

REACTIONS (2)
  - Anaphylactic shock [Recovered/Resolved]
  - Dyspnoea [Recovered/Resolved]
